FAERS Safety Report 8990129 (Version 1)
Quarter: 2012Q4

REPORT INFORMATION
  Report Type: 
  Country: FR (occurrence: FR)
  Receive Date: 20121228
  Receipt Date: 20121228
  Transmission Date: 20130627
  Serious: Yes (Hospitalization)
  Sender: FDA-Public Use
  Company Number: FR-B.I. PHARMACEUTICALS,INC./RIDGEFIELD-2012-FF-01992FF

PATIENT
  Age: 86 Year
  Sex: Male
  Weight: 100 kg

DRUGS (7)
  1. PRADAXA [Suspect]
     Indication: ATRIAL FIBRILLATION
     Dosage: 220 mg
     Route: 048
     Dates: start: 20121207, end: 20121212
  2. AUGMENTIN [Suspect]
     Indication: LUNG DISORDER
     Dosage: 500 mg
     Route: 042
     Dates: start: 20121203, end: 20121203
  3. TAVANIC [Concomitant]
     Indication: LUNG DISORDER
     Dosage: 500 mg
     Route: 042
     Dates: start: 20121205, end: 20121213
  4. LASILIX [Concomitant]
     Indication: CARDIAC FAILURE
     Dosage: 40 mg
     Route: 042
     Dates: start: 20121205, end: 20121210
  5. CARDENSIEL [Concomitant]
     Indication: CARDIAC FAILURE
     Dosage: 1.25 mg
     Route: 048
  6. BRICANYL [Concomitant]
     Indication: LUNG DISORDER
     Route: 055
     Dates: start: 20121205, end: 20121210
  7. ATROVENT [Concomitant]
     Indication: LUNG DISORDER
     Route: 055
     Dates: start: 20121205, end: 20121210

REACTIONS (1)
  - Dermatitis exfoliative [Recovered/Resolved]
